FAERS Safety Report 22958696 (Version 2)
Quarter: 2023Q4

REPORT INFORMATION
  Report Type: Spontaneous
  Country: GB (occurrence: GB)
  Receive Date: 20230919
  Receipt Date: 20231004
  Transmission Date: 20240109
  Serious: Yes (Hospitalization, Other)
  Sender: FDA-Public Use
  Company Number: GB-MHRA-MED-202309021810403990-QLGVB

PATIENT
  Age: 38 Year
  Sex: Male
  Weight: 141 kg

DRUGS (2)
  1. ATORVASTATIN [Suspect]
     Active Substance: ATORVASTATIN
     Indication: Adverse drug reaction
     Dosage: 50 , TABLET
     Route: 065
     Dates: start: 20180901, end: 2023
  2. BUMETANIDE [Concomitant]
     Active Substance: BUMETANIDE
     Indication: Rheumatic heart disease
     Dosage: UNK
     Route: 065
     Dates: start: 2019

REACTIONS (7)
  - Medication error [Unknown]
  - Dyspnoea [Not Recovered/Not Resolved]
  - Chromaturia [Unknown]
  - Arthralgia [Unknown]
  - Confusional state [Unknown]
  - Fatigue [Unknown]
  - Constipation [Unknown]

NARRATIVE: CASE EVENT DATE: 20190404
